FAERS Safety Report 4895118-3 (Version None)
Quarter: 2006Q1

REPORT INFORMATION
  Report Type: 
  Country: None (occurrence: None)
  Receive Date: 20060130
  Receipt Date: 20060120
  Transmission Date: 20060701
  Serious: Yes (Hospitalization)
  Sender: FDA-Public Use
  Company Number: 2006UW01123

PATIENT
  Age: 58 Year
  Sex: Male

DRUGS (20)
  1. ATACAND HCT [Suspect]
     Route: 048
  2. PLAVIX [Concomitant]
  3. OMEPRAZOLE [Concomitant]
  4. POTASSIUM CHLORIDE [Concomitant]
  5. NITROGLYCERIN [Concomitant]
  6. FLUTICASONE PROPIONATE [Concomitant]
  7. TIOTROPIUM [Concomitant]
  8. FENOFIBRATE [Concomitant]
  9. SPIRONOLACTONE [Concomitant]
  10. LASIX [Concomitant]
  11. FISH OIL [Concomitant]
  12. AMLODIPINE [Concomitant]
  13. ISORDIL [Concomitant]
  14. CARVEDILOL [Concomitant]
  15. LEVOTHYROXINE SODIUM [Concomitant]
  16. FLUOXETINE [Concomitant]
  17. FLUNISOLIDE [Concomitant]
  18. ALBUTEROL SULFATE AUTOHALER [Concomitant]
  19. ASPIRIN [Concomitant]
  20. ATORVASTATIN CALCIUM [Concomitant]

REACTIONS (2)
  - BLOOD PRESSURE INADEQUATELY CONTROLLED [None]
  - HYPERTENSION [None]
